FAERS Safety Report 7828884-5 (Version None)
Quarter: 2011Q4

REPORT INFORMATION
  Report Type: 
  Country: None (occurrence: None)
  Receive Date: 20111020
  Receipt Date: 20111007
  Transmission Date: 20120403
  Serious: Yes (Hospitalization)
  Sender: FDA-Public Use
  Company Number: US-BAYER-2011-027466

PATIENT
  Age: 25 Year
  Sex: Female

DRUGS (11)
  1. YASMIN [Suspect]
     Indication: PREMENSTRUAL SYNDROME
  2. IBUPROFEN [Concomitant]
     Dosage: 800 MG, PRN
     Route: 048
  3. IMITREX [Concomitant]
     Dosage: 100 MG, PRN
  4. YAZ [Suspect]
     Indication: ACNE
  5. FLUOXETINE HYDROCHLORIDE [Concomitant]
     Dosage: 20 MG, QD
  6. YASMIN [Suspect]
     Indication: ACNE
  7. YAZ [Suspect]
     Indication: PREMENSTRUAL SYNDROME
  8. TRAZODONE HCL [Concomitant]
     Dosage: 100 MG, CONT
     Route: 048
  9. YASMIN [Suspect]
     Indication: CONTRACEPTION
     Dosage: UNK
     Dates: start: 20081208, end: 20091117
  10. XANAX [Concomitant]
     Dosage: 0.25 MG, PRN
     Route: 048
  11. YAZ [Suspect]
     Indication: CONTRACEPTION
     Dosage: UNK
     Dates: start: 20100117, end: 20100501

REACTIONS (6)
  - CHOLELITHIASIS [None]
  - FEAR [None]
  - INJURY [None]
  - ABDOMINAL PAIN UPPER [None]
  - CHOLECYSTITIS CHRONIC [None]
  - PAIN [None]
